FAERS Safety Report 16705744 (Version 2)
Quarter: 2019Q4

REPORT INFORMATION
  Report Type: Report from Study
  Country: US (occurrence: US)
  Receive Date: 20190815
  Receipt Date: 20191206
  Transmission Date: 20200122
  Serious: Yes (Hospitalization, Other)
  Sender: FDA-Public Use
  Company Number: PHEH2019US033399

PATIENT
  Sex: Female

DRUGS (1)
  1. ENTRESTO [Suspect]
     Active Substance: SACUBITRIL\VALSARTAN
     Indication: CARDIAC FAILURE
     Dosage: 1 DF, BID
     Route: 048

REACTIONS (10)
  - Upper limb fracture [Unknown]
  - Loss of consciousness [Unknown]
  - Abdominal discomfort [Unknown]
  - Dysstasia [Unknown]
  - Blood potassium increased [Unknown]
  - Blood pressure decreased [Unknown]
  - Fall [Unknown]
  - Constipation [Unknown]
  - Atrial fibrillation [Unknown]
  - Osteoporosis [Unknown]
